FAERS Safety Report 14921819 (Version 1)
Quarter: 2018Q2

REPORT INFORMATION
  Report Type: Spontaneous
  Country: FR (occurrence: FR)
  Receive Date: 20180522
  Receipt Date: 20180522
  Transmission Date: 20180711
  Serious: Yes (Other)
  Sender: FDA-Public Use
  Company Number: FR-MERCK KGAA-2048201

PATIENT
  Age: 33 Year
  Sex: Female

DRUGS (1)
  1. NOVOTHYROX [Suspect]
     Active Substance: LEVOTHYROXINE SODIUM
     Indication: PRODUCT USED FOR UNKNOWN INDICATION
     Dates: start: 20170307

REACTIONS (23)
  - Dry eye [Recovered/Resolved]
  - Pain in extremity [None]
  - Libido decreased [None]
  - Cardiovascular disorder [None]
  - Blood thyroid stimulating hormone decreased [None]
  - Presyncope [Recovered/Resolved]
  - Throat irritation [None]
  - Visual impairment [None]
  - Hypertension [None]
  - Fatigue [Recovered/Resolved]
  - Tachycardia [None]
  - Migraine [None]
  - Crying [None]
  - Dizziness [Recovered/Resolved]
  - Insomnia [None]
  - Abdominal pain upper [Recovered/Resolved]
  - Aggression [None]
  - Feeding disorder [None]
  - Menorrhagia [Recovered/Resolved]
  - Vomiting [None]
  - Gastric pH decreased [None]
  - Haematoma [None]
  - Diffuse alopecia [Recovered/Resolved]

NARRATIVE: CASE EVENT DATE: 201703
